FAERS Safety Report 23995658 (Version 1)
Quarter: 2024Q2

REPORT INFORMATION
  Report Type: Spontaneous
  Country: US (occurrence: None)
  Receive Date: 20240619
  Receipt Date: 20240619
  Transmission Date: 20240716
  Serious: Yes (Other)
  Sender: FDA-Public Use
  Company Number: None

PATIENT
  Age: 50 Year
  Sex: Male

DRUGS (3)
  1. PAZOPANIB [Suspect]
     Active Substance: PAZOPANIB
     Indication: Malignant neoplasm of thorax
     Dosage: FREQUENCY : DAILY;?
  2. PAZOPANIB [Suspect]
     Active Substance: PAZOPANIB
     Indication: Soft tissue sarcoma
  3. PAZOPANIB [Suspect]
     Active Substance: PAZOPANIB
     Indication: Malignant connective tissue neoplasm

REACTIONS (2)
  - Asthenia [None]
  - Pain [None]
